FAERS Safety Report 20705668 (Version 1)
Quarter: 2022Q2

REPORT INFORMATION
  Report Type: Spontaneous
  Country: US (occurrence: None)
  Receive Date: 20220412
  Receipt Date: 20220412
  Transmission Date: 20220720
  Serious: Yes (Other)
  Sender: FDA-Public Use
  Company Number: None

PATIENT
  Age: 29 Year
  Sex: Female
  Weight: 58.95 kg

DRUGS (7)
  1. CLENPIQ [Suspect]
     Active Substance: ANHYDROUS CITRIC ACID\MAGNESIUM OXIDE\SODIUM PICOSULFATE
     Indication: Colonoscopy
     Dosage: OTHER QUANTITY : 2 BOTTLES;?OTHER FREQUENCY : COLONOSCOPY PREP;?
     Route: 048
     Dates: start: 20220412, end: 20220412
  2. Lialda 2.4 g [Concomitant]
  3. Ginger supplements [Concomitant]
  4. turmeric supplements [Concomitant]
  5. VITAMINS [Concomitant]
     Active Substance: VITAMINS
  6. VITAMIN D3 [Concomitant]
     Active Substance: CHOLECALCIFEROL
  7. b-complex vitamin [Concomitant]

REACTIONS (1)
  - Hypersensitivity [None]

NARRATIVE: CASE EVENT DATE: 20220412
